FAERS Safety Report 4489478-5 (Version None)
Quarter: 2004Q4

REPORT INFORMATION
  Report Type: 
  Country: None (occurrence: None)
  Receive Date: 20041026
  Receipt Date: 20041013
  Transmission Date: 20050328
  Serious: Yes (Other)
  Sender: FDA-Public Use
  Company Number: 2004235588FI

PATIENT
  Age: 45 Year
  Sex: Female

DRUGS (2)
  1. BEXTRA [Suspect]
     Indication: NERVE COMPRESSION
     Dosage: 20 MG, QD, ORAL
     Route: 048
     Dates: start: 20040909, end: 20040910
  2. ESTRADIOL [Concomitant]

REACTIONS (3)
  - MOUTH HAEMORRHAGE [None]
  - MOUTH PLAQUE [None]
  - MUCOSAL HAEMORRHAGE [None]
